FAERS Safety Report 17813178 (Version 1)
Quarter: 2020Q2

REPORT INFORMATION
  Report Type: Spontaneous
  Country: US (occurrence: US)
  Receive Date: 20200521
  Receipt Date: 20200521
  Transmission Date: 20200714
  Serious: Yes (Death)
  Sender: FDA-Public Use
  Company Number: US-ABBVIE-20K-163-3413564-00

PATIENT
  Age: 84 Year
  Sex: Male

DRUGS (1)
  1. DUOPA [Suspect]
     Active Substance: CARBIDOPA\LEVODOPA
     Indication: PARKINSON^S DISEASE
     Route: 050
     Dates: start: 2017, end: 202001

REACTIONS (4)
  - Parkinson^s disease [Fatal]
  - Skin disorder [Not Recovered/Not Resolved]
  - Seizure [Fatal]
  - Medical device removal [Not Recovered/Not Resolved]

NARRATIVE: CASE EVENT DATE: 201912
